FAERS Safety Report 4800039-8 (Version None)
Quarter: 2005Q4

REPORT INFORMATION
  Report Type: 
  Country: None (occurrence: None)
  Receive Date: 20051017
  Receipt Date: 20051006
  Transmission Date: 20060501
  Serious: Yes (Hospitalization)
  Sender: FDA-Public Use
  Company Number: US-JNJFOC-20051001776

PATIENT
  Sex: Male

DRUGS (9)
  1. INFLIXIMAB [Suspect]
     Indication: RHEUMATOID ARTHRITIS
     Route: 042
  2. ASPIRIN [Concomitant]
  3. CALCIUM GLUCONATE [Concomitant]
  4. FOLIC ACID [Concomitant]
  5. LORTAB [Concomitant]
  6. LORTAB [Concomitant]
  7. METHOTREXATE [Concomitant]
  8. PLAQUENIL [Concomitant]
  9. PREDNISONE [Concomitant]

REACTIONS (7)
  - AORTIC ANEURYSM [None]
  - CHOLELITHIASIS [None]
  - HYPERTENSIVE CRISIS [None]
  - INTERSTITIAL LUNG DISEASE [None]
  - PNEUMONIA [None]
  - SHOULDER PAIN [None]
  - URINARY TRACT INFECTION [None]
